FAERS Safety Report 5917434-6 (Version None)
Quarter: 2008Q4

REPORT INFORMATION
  Report Type: 
  Country: None (occurrence: None)
  Receive Date: 20081009
  Receipt Date: 20081009
  Transmission Date: 20090506
  Serious: Yes (Hospitalization)
  Sender: FDA-Public Use
  Company Number: None

PATIENT
  Age: 65 Year
  Sex: Female
  Weight: 78.0187 kg

DRUGS (2)
  1. SUDAFED  30 MG [Suspect]
     Dosage: 2 TABLETS TID PO
     Route: 048
  2. EXCEDRIN [Suspect]
     Dosage: 3 CAPSULE TID PO
     Route: 048

REACTIONS (3)
  - CARDIOMEGALY [None]
  - HEART RATE INCREASED [None]
  - SELF-MEDICATION [None]
